FAERS Safety Report 20485606 (Version 5)
Quarter: 2022Q2

REPORT INFORMATION
  Report Type: Report from Study
  Country: CN (occurrence: CN)
  Receive Date: 20220217
  Receipt Date: 20220504
  Transmission Date: 20220721
  Serious: Yes (Hospitalization)
  Sender: FDA-Public Use
  Company Number: CN-ADC THERAPEUTICS-ADC-2022-000020

PATIENT
  Age: 77 Year
  Sex: Male
  Weight: 80 kg

DRUGS (8)
  1. LONCASTUXIMAB TESIRINE [Suspect]
     Active Substance: LONCASTUXIMAB TESIRINE
     Indication: Diffuse large B-cell lymphoma
     Dosage: 150 MICROGRAM/KILOGRAM, Q3WK
     Route: 042
     Dates: start: 20220120
  2. LONCASTUXIMAB TESIRINE [Suspect]
     Active Substance: LONCASTUXIMAB TESIRINE
     Dosage: 150 MICROGRAM/KILOGRAM, Q3WK
     Route: 042
     Dates: start: 20220301
  3. VALSARTAN [Concomitant]
     Active Substance: VALSARTAN
     Indication: Blood pressure increased
     Dosage: 40 MG, QD
     Route: 048
     Dates: start: 2019, end: 20220209
  4. ATORVASTATIN CALCIUM [Concomitant]
     Active Substance: ATORVASTATIN CALCIUM
     Indication: Lipids increased
     Dosage: 20 MG, QD
     Route: 048
     Dates: start: 20220129, end: 20220209
  5. ATORVASTATIN CALCIUM [Concomitant]
     Active Substance: ATORVASTATIN CALCIUM
     Dosage: 20 MG, QD
     Route: 048
     Dates: start: 20220216
  6. BICYCLOL [Concomitant]
     Active Substance: BICYCLOL
     Indication: Nephroprotective therapy
     Dosage: 25 MG, TID
     Route: 048
     Dates: start: 20220124, end: 20220206
  7. BICYCLOL [Concomitant]
     Active Substance: BICYCLOL
     Dosage: 50 MG, TID
     Route: 048
     Dates: start: 20220207
  8. LEVAMLODIPINE MALEATE [Concomitant]
     Active Substance: LEVAMLODIPINE MALEATE
     Indication: Blood pressure increased
     Dosage: 2.5 MG, QD
     Route: 048
     Dates: start: 2019, end: 20220215

REACTIONS (2)
  - Pneumonia bacterial [Not Recovered/Not Resolved]
  - Neutrophil count decreased [Recovered/Resolved]

NARRATIVE: CASE EVENT DATE: 20220201
